FAERS Safety Report 4370048-4 (Version None)
Quarter: 2004Q2

REPORT INFORMATION
  Report Type: 
  Country: None (occurrence: None)
  Receive Date: 20040603
  Receipt Date: 20040310
  Transmission Date: 20050107
  Serious: Yes (Hospitalization)
  Sender: FDA-Public Use
  Company Number: FR-BRISTOL-MYERS SQUIBB COMPANY-12529723

PATIENT
  Age: 43 Year
  Sex: Female
  Weight: 61 kg

DRUGS (3)
  1. VIDEX EC [Suspect]
     Route: 048
     Dates: start: 20030902, end: 20031002
  2. ZIAGEN [Suspect]
     Route: 048
     Dates: start: 20030902, end: 20031002
  3. KALETRA [Suspect]
     Route: 048
     Dates: start: 20030902, end: 20031002

REACTIONS (1)
  - MUSCLE NECROSIS [None]
